APPROVED DRUG PRODUCT: METHYLPREDNISOLONE ACETATE
Active Ingredient: METHYLPREDNISOLONE ACETATE
Strength: 40MG/ML
Dosage Form/Route: INJECTABLE;INJECTION
Application: A040557 | Product #001 | TE Code: AB
Applicant: HONG KONG KING FRIEND INDUSTRIAL CO LTD
Approved: Feb 23, 2005 | RLD: No | RS: No | Type: RX